FAERS Safety Report 6819007-X (Version None)
Quarter: 2010Q3

REPORT INFORMATION
  Report Type: 
  Country: None (occurrence: None)
  Receive Date: 20100707
  Receipt Date: 20100701
  Transmission Date: 20110219
  Serious: Yes (Life-Threatening)
  Sender: FDA-Public Use
  Company Number: JP-TYCO HEALTHCARE/MALLINCKRODT-T201001506

PATIENT
  Age: 61 Year
  Sex: Female

DRUGS (2)
  1. OPTIRAY 350 [Suspect]
     Indication: COMPUTERISED TOMOGRAM
     Dosage: 100 ML, SINGLE
     Route: 042
     Dates: start: 20100615, end: 20100615
  2. SPIRONOLACTONE [Concomitant]
     Dosage: 25 MG, BID
     Route: 048

REACTIONS (1)
  - SHOCK [None]
